FAERS Safety Report 9423575 (Version 1)
Quarter: 2013Q3

REPORT INFORMATION
  Report Type: Report from Study
  Country: CA (occurrence: CA)
  Receive Date: 20130726
  Receipt Date: 20130726
  Transmission Date: 20140515
  Serious: Yes (Hospitalization)
  Sender: FDA-Public Use
  Company Number: CA-ABBOTT-13P-028-1123438-00

PATIENT
  Sex: Female
  Weight: 64.47 kg

DRUGS (2)
  1. HUMIRA [Suspect]
     Indication: CROHN^S DISEASE
     Route: 058
     Dates: start: 20121025
  2. HUMIRA [Suspect]
     Dosage: DOSE INCREASED
     Route: 058

REACTIONS (3)
  - Intestinal obstruction [Recovering/Resolving]
  - Constipation [Unknown]
  - Drug effect decreased [Unknown]
